FAERS Safety Report 4480485-5 (Version None)
Quarter: 2004Q4

REPORT INFORMATION
  Report Type: 
  Country: None (occurrence: None)
  Receive Date: 20041018
  Receipt Date: 20041006
  Transmission Date: 20050328
  Serious: Yes (Hospitalization)
  Sender: FDA-Public Use
  Company Number: 185583

PATIENT
  Age: 59 Year
  Sex: Female
  Weight: 58.9676 kg

DRUGS (10)
  1. AVONEX [Suspect]
     Indication: MULTIPLE SCLEROSIS
     Dosage: 30 MCG QW IM
     Route: 030
     Dates: start: 19960101, end: 20031001
  2. AVONEX [Suspect]
     Indication: MULTIPLE SCLEROSIS
     Dosage: 30 MCG QW IM
     Route: 030
     Dates: start: 20031101
  3. PAXIL [Concomitant]
  4. LANOXIN [Concomitant]
  5. CALAN [Concomitant]
  6. DITROPAN [Concomitant]
  7. CIPRO [Concomitant]
  8. MULTI-VITAMINS [Concomitant]
  9. VITAMIN C [Concomitant]
  10. CRANBERRY PILL [Concomitant]

REACTIONS (5)
  - COLON CANCER STAGE III [None]
  - CONDITION AGGRAVATED [None]
  - METASTASES TO LYMPH NODES [None]
  - MULTIPLE SCLEROSIS [None]
  - PAGET'S DISEASE OF THE VULVA [None]
